FAERS Safety Report 13255781 (Version 2)
Quarter: 2017Q1

REPORT INFORMATION
  Report Type: Report from Study
  Country: TW (occurrence: TW)
  Receive Date: 20170221
  Receipt Date: 20170323
  Transmission Date: 20170428
  Serious: Yes (Hospitalization, Other)
  Sender: FDA-Public Use
  Company Number: TW-JNJFOC-20170202833

PATIENT
  Age: 52 Year
  Sex: Male
  Weight: 80 kg

DRUGS (11)
  1. COSOPT [Concomitant]
     Active Substance: DORZOLAMIDE HYDROCHLORIDE\TIMOLOL MALEATE
     Indication: OCULAR HYPERTENSION
     Dosage: DORZOLAMIDE 2% AND TIMOLOL 0.5%
     Route: 047
     Dates: start: 20160608, end: 20170128
  2. SIMPONI [Suspect]
     Active Substance: GOLIMUMAB
     Indication: ANKYLOSING SPONDYLITIS
     Route: 058
     Dates: start: 20131022
  3. ALPHAGAN P [Concomitant]
     Active Substance: BRIMONIDINE TARTRATE
     Indication: GLAUCOMA
     Route: 047
     Dates: start: 20160524, end: 20170128
  4. ACETAZOLAMIDE. [Concomitant]
     Active Substance: ACETAZOLAMIDE
     Indication: GLAUCOMA
     Route: 048
     Dates: start: 20160527, end: 20160528
  5. FEBURIC [Concomitant]
     Active Substance: FEBUXOSTAT
     Indication: ANGINA UNSTABLE
     Route: 048
     Dates: start: 20140805, end: 20170128
  6. ACETAZOLAMIDE. [Concomitant]
     Active Substance: ACETAZOLAMIDE
     Indication: GLAUCOMA
     Route: 048
     Dates: start: 20160524, end: 20160526
  7. MOBIC [Concomitant]
     Active Substance: MELOXICAM
     Indication: ANKYLOSING SPONDYLITIS
     Dosage: WHEN NEEDED
     Route: 048
     Dates: start: 20141009, end: 20170128
  8. SALAZINE [Concomitant]
     Active Substance: SULFASALAZINE
     Indication: ANKYLOSING SPONDYLITIS
     Dosage: 1G-2G
     Route: 048
     Dates: start: 20130507, end: 20140128
  9. SALAZINE [Concomitant]
     Active Substance: SULFASALAZINE
     Indication: ANKYLOSING SPONDYLITIS
     Dosage: 1G-2G
     Route: 048
     Dates: start: 20160105, end: 20170128
  10. ALDIOXA [Concomitant]
     Active Substance: ALDIOXA
     Indication: ABDOMINAL DISCOMFORT
     Route: 048
     Dates: start: 20160524, end: 20170128
  11. TRAVATAN [Concomitant]
     Active Substance: TRAVOPROST
     Indication: GLAUCOMA
     Dosage: AT BEDTIME OR HALF-STRENGTH
     Route: 065
     Dates: start: 20160608, end: 20170128

REACTIONS (4)
  - Chance fracture [Recovered/Resolved]
  - Fall [Unknown]
  - Glaucoma [Not Recovered/Not Resolved]
  - Spinal operation [Unknown]

NARRATIVE: CASE EVENT DATE: 20160324
